FAERS Safety Report 17264817 (Version 1)
Quarter: 2020Q1

REPORT INFORMATION
  Report Type: Report from Study
  Country: CA (occurrence: CA)
  Receive Date: 20200113
  Receipt Date: 20200113
  Transmission Date: 20200409
  Serious: Yes (Hospitalization, Other)
  Sender: FDA-Public Use
  Company Number: CA-TEVA-2020-CA-1167102

PATIENT
  Age: 38 Year
  Sex: Female

DRUGS (4)
  1. OMALIZUMAB. [Suspect]
     Active Substance: OMALIZUMAB
     Route: 058
  2. MORPHINE [Suspect]
     Active Substance: MORPHINE
     Indication: PRODUCT USED FOR UNKNOWN INDICATION
     Route: 065
  3. OMALIZUMAB. [Suspect]
     Active Substance: OMALIZUMAB
     Route: 058
  4. OMALIZUMAB. [Suspect]
     Active Substance: OMALIZUMAB
     Indication: ASTHMA
     Route: 058

REACTIONS (8)
  - Hypersensitivity [Unknown]
  - Malaise [Unknown]
  - Influenza like illness [Unknown]
  - Thrombosis [Unknown]
  - Blood pressure increased [Unknown]
  - Drug intolerance [Unknown]
  - Pneumonia [Unknown]
  - Dyspnoea [Unknown]
